FAERS Safety Report 9367334 (Version 1)
Quarter: 2013Q2

REPORT INFORMATION
  Report Type: Spontaneous
  Country: US (occurrence: US)
  Receive Date: 20130625
  Receipt Date: 20130625
  Transmission Date: 20140414
  Serious: Yes (Other)
  Sender: FDA-Public Use
  Company Number: US-PAR PHARMACEUTICAL, INC-2013SCPR005987

PATIENT
  Sex: 0

DRUGS (3)
  1. METOCLOPRAMIDE [Suspect]
     Indication: NAUSEA
     Dosage: 10 MG, TID
     Route: 048
     Dates: start: 20070514, end: 20100402
  2. METOCLOPRAMIDE [Suspect]
     Indication: GASTROINTESTINAL DISORDER
  3. METOCLOPRAMIDE [Suspect]
     Indication: CONSTIPATION

REACTIONS (5)
  - Carditis [Not Recovered/Not Resolved]
  - Encopresis [Recovered/Resolved]
  - Enuresis [Recovered/Resolved]
  - Tardive dyskinesia [Recovering/Resolving]
  - Extrapyramidal disorder [Recovering/Resolving]
